FAERS Safety Report 6866068-8 (Version None)
Quarter: 2010Q3

REPORT INFORMATION
  Report Type: 
  Country: None (occurrence: None)
  Receive Date: 20100722
  Receipt Date: 20100709
  Transmission Date: 20110219
  Serious: Yes (Other)
  Sender: FDA-Public Use
  Company Number: PHHY2010DE32860

PATIENT
  Sex: Female

DRUGS (1)
  1. ACLASTA [Suspect]
     Indication: OSTEOPOROSIS
     Dosage: 5 MG YEARLY
     Dates: start: 20100511

REACTIONS (6)
  - BLOOD PRESSURE INCREASED [None]
  - CONJUNCTIVITIS [None]
  - HEADACHE [None]
  - HEART RATE INCREASED [None]
  - PAIN IN EXTREMITY [None]
  - POLYNEUROPATHY [None]
